FAERS Safety Report 18322839 (Version 2)
Quarter: 2021Q2

REPORT INFORMATION
  Report Type: Spontaneous
  Country: US (occurrence: US)
  Receive Date: 20200928
  Receipt Date: 20210428
  Transmission Date: 20210717
  Serious: No
  Sender: FDA-Public Use
  Company Number: US-MYLANLABS-2020M1080124

PATIENT
  Age: 11 Month

DRUGS (1)
  1. EPIPEN JR [Suspect]
     Active Substance: EPINEPHRINE
     Indication: PRODUCT USED FOR UNKNOWN INDICATION
     Dosage: UNK UNK, PRN (AS NEEDED)
     Route: 030

REACTIONS (3)
  - Product contamination [None]
  - Product quality issue [None]
  - Product odour abnormal [None]

NARRATIVE: CASE EVENT DATE: 20200915
